FAERS Safety Report 4287829-8 (Version None)
Quarter: 2004Q1

REPORT INFORMATION
  Report Type: 
  Country: None (occurrence: None)
  Receive Date: 20040205
  Receipt Date: 20040115
  Transmission Date: 20041129
  Serious: No
  Sender: FDA-Public Use
  Company Number: USA031255473

PATIENT
  Age: 26 Year
  Sex: Male
  Weight: 106 kg

DRUGS (1)
  1. ZYPREXA [Suspect]
     Indication: SCHIZOPHRENIA
     Dosage: 15 MG/DAY

REACTIONS (6)
  - ABNORMAL DREAMS [None]
  - EPISTAXIS [None]
  - HEADACHE [None]
  - HYPOAESTHESIA [None]
  - WEIGHT DECREASED [None]
  - WEIGHT INCREASED [None]
